FAERS Safety Report 8540675-9 (Version None)
Quarter: 2012Q3

REPORT INFORMATION
  Report Type: 
  Country: None (occurrence: None)
  Receive Date: 20120726
  Receipt Date: 20120719
  Transmission Date: 20120928
  Serious: Yes (Life-Threatening, Hospitalization)
  Sender: FDA-Public Use
  Company Number: JP-009507513-1207JPN008161

PATIENT

DRUGS (12)
  1. ZOLINZA [Suspect]
     Indication: MYCOSIS FUNGOIDES
     Route: 048
     Dates: start: 20120411, end: 20120414
  2. FAMOTIDINE [Concomitant]
     Route: 048
  3. ZOLPIDEM [Concomitant]
     Route: 048
  4. ZOLINZA [Suspect]
     Route: 048
     Dates: start: 20120509, end: 20120510
  5. NORVASC [Concomitant]
     Route: 048
  6. ZOLINZA [Suspect]
  7. PREDNISOLONE [Concomitant]
     Indication: PERIPHERAL T-CELL LYMPHOMA UNSPECIFIED
     Route: 048
  8. DIFLUCAN [Concomitant]
     Indication: PERIPHERAL T-CELL LYMPHOMA UNSPECIFIED
     Route: 048
  9. ZOLINZA [Suspect]
     Indication: PERIPHERAL T-CELL LYMPHOMA UNSPECIFIED
  10. LASIX [Concomitant]
     Route: 048
  11. MAGMITT [Concomitant]
     Route: 048
  12. PURSENNID (SENNOSIDES) [Concomitant]
     Route: 048

REACTIONS (5)
  - URINE OUTPUT DECREASED [None]
  - PYREXIA [None]
  - OXYGEN SATURATION DECREASED [None]
  - RENAL DISORDER [None]
  - ALTERED STATE OF CONSCIOUSNESS [None]
